FAERS Safety Report 9189867 (Version 1)
Quarter: 2013Q1

REPORT INFORMATION
  Report Type: Spontaneous
  Country: US (occurrence: None)
  Receive Date: 20130322
  Receipt Date: 20130322
  Transmission Date: 20140127
  Serious: No
  Sender: FDA-Public Use
  Company Number: None

PATIENT
  Age: 35 Year
  Sex: Female

DRUGS (1)
  1. KETOROLAC TROMETHAMINE [Suspect]
     Indication: PAIN
     Dosage: 30MG ONCE IV
     Route: 042
     Dates: start: 20130321, end: 20130321

REACTIONS (1)
  - Wrong technique in drug usage process [None]
